FAERS Safety Report 7557255-4 (Version None)
Quarter: 2011Q2

REPORT INFORMATION
  Report Type: 
  Country: None (occurrence: None)
  Receive Date: 20110620
  Receipt Date: 20110614
  Transmission Date: 20111010
  Serious: Yes (Death)
  Sender: FDA-Public Use
  Company Number: US-PFIZER INC-2011132562

PATIENT
  Sex: Male

DRUGS (1)
  1. VFEND [Suspect]
     Indication: ACUTE LEUKAEMIA
     Dosage: 200 MG, 2X/DAY
     Route: 048

REACTIONS (1)
  - DEATH [None]
